FAERS Safety Report 11682276 (Version 4)
Quarter: 2016Q3

REPORT INFORMATION
  Report Type: Report from Study
  Country: CO (occurrence: CO)
  Receive Date: 20151029
  Receipt Date: 20160721
  Transmission Date: 20161109
  Serious: Yes (Hospitalization, Other)
  Sender: FDA-Public Use
  Company Number: CO-AMGEN-COLSL2015112714

PATIENT
  Age: 79 Year
  Sex: Female
  Weight: 60 kg

DRUGS (3)
  1. NPLATE [Suspect]
     Active Substance: ROMIPLOSTIM
     Dosage: 250 MUG, QWK
     Route: 058
  2. NPLATE [Suspect]
     Active Substance: ROMIPLOSTIM
     Dosage: 200 MUG, QWK
     Route: 058
  3. NPLATE [Suspect]
     Active Substance: ROMIPLOSTIM
     Indication: IMMUNE THROMBOCYTOPENIC PURPURA
     Dosage: 125 MUG, QWK
     Route: 058
     Dates: start: 20150521

REACTIONS (10)
  - Lip oedema [Recovered/Resolved]
  - Hypothermia [Not Recovered/Not Resolved]
  - Headache [Not Recovered/Not Resolved]
  - Diarrhoea [Recovering/Resolving]
  - Decreased appetite [Not Recovered/Not Resolved]
  - Diabetes mellitus [Unknown]
  - Thrombocytopenia [Not Recovered/Not Resolved]
  - Petechiae [Recovering/Resolving]
  - Biopsy lip [Recovered/Resolved with Sequelae]
  - Ecchymosis [Recovering/Resolving]

NARRATIVE: CASE EVENT DATE: 20151016
